FAERS Safety Report 16565233 (Version 3)
Quarter: 2019Q3

REPORT INFORMATION
  Report Type: Report from Study
  Country: BE (occurrence: BE)
  Receive Date: 20190712
  Receipt Date: 20190805
  Transmission Date: 20191004
  Serious: Yes (Hospitalization)
  Sender: FDA-Public Use
  Company Number: BE-TEVA-2019-BE-1077479

PATIENT
  Age: 28 Year
  Sex: Female

DRUGS (1)
  1. COPAXONE [Suspect]
     Active Substance: GLATIRAMER ACETATE
     Indication: MULTIPLE SCLEROSIS
     Route: 065
     Dates: start: 20190307, end: 20190629

REACTIONS (5)
  - Skin plaque [Not Recovered/Not Resolved]
  - Generalised erythema [Not Recovered/Not Resolved]
  - Drug intolerance [Unknown]
  - Drug hypersensitivity [Not Recovered/Not Resolved]
  - Orthognathic surgery [Unknown]

NARRATIVE: CASE EVENT DATE: 201906
